FAERS Safety Report 13381968 (Version 1)
Quarter: 2017Q1

REPORT INFORMATION
  Report Type: Spontaneous
  Country: US (occurrence: US)
  Receive Date: 20170329
  Receipt Date: 20170329
  Transmission Date: 20170429
  Serious: No
  Sender: FDA-Public Use
  Company Number: US-MYLANLABS-2017M1005153

PATIENT
  Age: 55 Year
  Sex: Female

DRUGS (3)
  1. CHLORTHALIDONE TABLETS USP [Suspect]
     Active Substance: CHLORTHALIDONE
     Indication: BLOOD PRESSURE MANAGEMENT
     Dosage: 6.25 MG, QD
     Route: 048
     Dates: start: 201609
  2. CHLORTHALIDONE TABLETS USP [Suspect]
     Active Substance: CHLORTHALIDONE
     Dosage: 25 MG, QD
     Route: 048
     Dates: end: 20170123
  3. CHLORTHALIDONE TABLETS USP [Suspect]
     Active Substance: CHLORTHALIDONE
     Dosage: 12.5 MG, QD
     Route: 048

REACTIONS (8)
  - Dyspnoea [Recovering/Resolving]
  - Feeling jittery [Recovering/Resolving]
  - Peripheral swelling [Recovering/Resolving]
  - Fatigue [Recovering/Resolving]
  - Heart rate irregular [Recovering/Resolving]
  - Insomnia [Recovering/Resolving]
  - Rash [Recovering/Resolving]
  - Swelling face [Recovering/Resolving]

NARRATIVE: CASE EVENT DATE: 201609
